FAERS Safety Report 18795040 (Version 1)
Quarter: 2021Q1

REPORT INFORMATION
  Report Type: Spontaneous
  Country: US (occurrence: US)
  Receive Date: 20210127
  Receipt Date: 20210127
  Transmission Date: 20210419
  Serious: Yes (Other)
  Sender: FDA-Public Use
  Company Number: None

PATIENT
  Age: 65 Year
  Sex: Male
  Weight: 92.7 kg

DRUGS (3)
  1. AZITHROMYCIN ANHYDROUS. [Concomitant]
     Active Substance: AZITHROMYCIN ANHYDROUS
     Dates: start: 20210105, end: 20210110
  2. PREDNISONE. [Concomitant]
     Active Substance: PREDNISONE
     Dates: start: 20210105, end: 20210110
  3. BAMLANIVIMAB. [Suspect]
     Active Substance: BAMLANIVIMAB
     Indication: ANTIVIRAL TREATMENT
     Dates: start: 20201229, end: 20201229

REACTIONS (4)
  - Drug eruption [None]
  - Alanine aminotransferase increased [None]
  - Leukocytosis [None]
  - Aspartate aminotransferase increased [None]

NARRATIVE: CASE EVENT DATE: 20210122
